FAERS Safety Report 4550588-5 (Version None)
Quarter: 2004Q4

REPORT INFORMATION
  Report Type: 
  Country: None (occurrence: None)
  Receive Date: 20041227
  Receipt Date: 20041108
  Transmission Date: 20050328
  Serious: No
  Sender: FDA-Public Use
  Company Number: 04P-163-0279913-00

PATIENT
  Age: 68 Year
  Sex: Female
  Weight: 80.7403 kg

DRUGS (8)
  1. HUMIRA [Suspect]
     Indication: RHEUMATOID ARTHRITIS
     Dosage: 40 MG, 1 IN 2 WK, SUBCUTANEOUS
     Route: 058
     Dates: start: 20020101
  2. METHOTREXATE [Concomitant]
  3. PREDNISONE [Concomitant]
  4. ESTROGENS CONJUGATED [Concomitant]
  5. ATORVASTATIN [Concomitant]
  6. BUCINDOLOL HYDROCHLORIDE [Concomitant]
  7. MULTIVITAMIN [Concomitant]
  8. AMITRIPTYLINE HYDROCHLORIDE [Concomitant]

REACTIONS (5)
  - AORTIC ATHEROSCLEROSIS [None]
  - ASTHENIA [None]
  - CHEST DISCOMFORT [None]
  - DYSPNOEA EXERTIONAL [None]
  - INTERSTITIAL LUNG DISEASE [None]
